FAERS Safety Report 21831888 (Version 1)
Quarter: 2023Q1

REPORT INFORMATION
  Report Type: Spontaneous
  Country: US (occurrence: US)
  Receive Date: 20230106
  Receipt Date: 20230106
  Transmission Date: 20230417
  Serious: No
  Sender: FDA-Public Use
  Company Number: US-BAYER-2023A001699

PATIENT
  Age: 32 Year
  Sex: Male

DRUGS (1)
  1. BETASERON [Suspect]
     Active Substance: INTERFERON BETA-1B
     Indication: Multiple sclerosis

REACTIONS (3)
  - Urticaria [Recovered/Resolved]
  - Pruritus [Recovered/Resolved]
  - Headache [Recovered/Resolved]
